FAERS Safety Report 9945104 (Version 1)
Quarter: 2014Q1

REPORT INFORMATION
  Report Type: Spontaneous
  Country: US (occurrence: US)
  Receive Date: 20140303
  Receipt Date: 20140303
  Transmission Date: 20141002
  Serious: No
  Sender: FDA-Public Use
  Company Number: US-ABBVIE-13P-163-1056484-00

PATIENT
  Age: 43 Year
  Sex: Female
  Weight: 116.22 kg

DRUGS (21)
  1. HUMIRA [Suspect]
     Indication: RHEUMATOID ARTHRITIS
     Dates: start: 201202
  2. METHOTREXATE [Concomitant]
     Indication: RHEUMATOID ARTHRITIS
  3. MOBIC [Concomitant]
     Indication: RHEUMATOID ARTHRITIS
  4. CYMBALTA [Concomitant]
     Indication: BACK PAIN
  5. TRAMADOL [Concomitant]
     Indication: RHEUMATOID ARTHRITIS
  6. LEVOTHYROXINE [Concomitant]
     Indication: HYPOTHYROIDISM
  7. PRILOSEC [Concomitant]
     Indication: PROPHYLAXIS
  8. SYMBICORT [Concomitant]
     Indication: ASTHMA
  9. ALBUTEROL [Concomitant]
     Indication: ASTHMA
  10. PREDNISONE [Concomitant]
     Indication: RHEUMATOID ARTHRITIS
  11. NEURONTIN [Concomitant]
     Indication: RHEUMATOID ARTHRITIS
  12. FOLIC ACID [Concomitant]
     Indication: VITAMIN SUPPLEMENTATION
  13. CRANBERRY [Concomitant]
     Indication: PROPHYLAXIS
  14. FISH OIL [Concomitant]
     Indication: VITAMIN SUPPLEMENTATION
  15. GLUCOSAMINE-MSM [Concomitant]
     Indication: OSTEOARTHRITIS
  16. CALCIUM PLUS D [Concomitant]
     Indication: VITAMIN SUPPLEMENTATION
  17. APRI 28TH BIRTH CONTROL [Concomitant]
     Indication: CONTRACEPTION
  18. ZANAFLEX [Concomitant]
     Indication: SCOLIOSIS
  19. PROBIOTIC [Concomitant]
     Indication: VITAMIN SUPPLEMENTATION
  20. FLUTACASONE [Concomitant]
     Indication: HYPERSENSITIVITY
  21. SUDAFED [Concomitant]
     Indication: HYPERSENSITIVITY

REACTIONS (2)
  - Upper limb fracture [Not Recovered/Not Resolved]
  - Fall [Recovered/Resolved]
